FAERS Safety Report 8580205-9 (Version None)
Quarter: 2012Q3

REPORT INFORMATION
  Report Type: 
  Country: None (occurrence: None)
  Receive Date: 20120808
  Receipt Date: 20120801
  Transmission Date: 20120928
  Serious: Yes (Other)
  Sender: FDA-Public Use
  Company Number: BR-PFIZER INC-2012187982

PATIENT
  Age: 67 Year
  Sex: Female
  Weight: 67 kg

DRUGS (1)
  1. LATANOPROST [Suspect]
     Dosage: ONE DROP IN EACH EYE (3 UG) ONCE DAILY
     Route: 047

REACTIONS (1)
  - INTRAOCULAR PRESSURE TEST ABNORMAL [None]
